FAERS Safety Report 6124836-4 (Version None)
Quarter: 2009Q1

REPORT INFORMATION
  Report Type: 
  Country: None (occurrence: None)
  Receive Date: 20090319
  Receipt Date: 20090319
  Transmission Date: 20090719
  Serious: Yes (Hospitalization, Other)
  Sender: FDA-Public Use
  Company Number: US-PFIZER INC-2009162028

PATIENT
  Sex: Male

DRUGS (17)
  1. SILDENAFIL CITRATE [Suspect]
     Indication: PULMONARY HYPERTENSION
     Dates: start: 20070101, end: 20080101
  2. ENALAPRIL MALEATE [Concomitant]
  3. ACETYLSALICYLIC ACID [Concomitant]
  4. DIURIL [Concomitant]
  5. VITAMINS [Concomitant]
  6. LASIX [Concomitant]
  7. ALL OTHER THERAPEUTIC PRODUCTS [Concomitant]
  8. DIGOXIN [Concomitant]
  9. PREVACID [Concomitant]
  10. ZANTAC [Concomitant]
  11. REGLAN [Concomitant]
  12. PULMICORT-100 [Concomitant]
  13. ALBUTEROL [Concomitant]
  14. ATROVENT [Concomitant]
  15. TYLENOL [Concomitant]
  16. IBUPROFEN [Concomitant]
  17. HOMEOPATHIC PREPARATION [Concomitant]

REACTIONS (4)
  - ADENOVIRUS INFECTION [None]
  - CARDIAC OPERATION [None]
  - ERYTHEMA INFECTIOSUM [None]
  - PYREXIA [None]
